FAERS Safety Report 11225433 (Version 1)
Quarter: 2015Q2

REPORT INFORMATION
  Report Type: Spontaneous
  Country: US (occurrence: None)
  Receive Date: 20150626
  Receipt Date: 20150626
  Transmission Date: 20150821
  Serious: Yes (Other)
  Sender: FDA-Public Use
  Company Number: None

PATIENT
  Age: 61 Year
  Sex: Male

DRUGS (1)
  1. HARVONI [Suspect]
     Active Substance: LEDIPASVIR\SOFOSBUVIR
     Indication: HEPATITIS C
     Route: 048
     Dates: start: 201503, end: 201505

REACTIONS (5)
  - Lip dry [None]
  - Chapped lips [None]
  - Lip blister [None]
  - Erythema [None]
  - Lip disorder [None]

NARRATIVE: CASE EVENT DATE: 20150506
